FAERS Safety Report 16199748 (Version 2)
Quarter: 2019Q3

REPORT INFORMATION
  Report Type: Spontaneous
  Country: US (occurrence: US)
  Receive Date: 20190415
  Receipt Date: 20190731
  Transmission Date: 20191004
  Serious: Yes (Other)
  Sender: FDA-Public Use
  Company Number: US-ASTRAZENECA-2019SE10426

PATIENT
  Sex: Male
  Weight: 83.9 kg

DRUGS (7)
  1. PEPCID [Concomitant]
     Active Substance: FAMOTIDINE
     Dosage: COMPLETE (OTC)
  2. PRILOSEC [Suspect]
     Active Substance: OMEPRAZOLE MAGNESIUM
     Route: 048
  3. LISINOPRIL. [Concomitant]
     Active Substance: LISINOPRIL
     Dates: start: 2014
  4. PRAVASTATIN. [Concomitant]
     Active Substance: PRAVASTATIN
     Dates: start: 2014
  5. PREVACID [Suspect]
     Active Substance: LANSOPRAZOLE
     Route: 065
  6. GAVISCAN [Concomitant]
  7. NEXIUM [Suspect]
     Active Substance: ESOMEPRAZOLE MAGNESIUM
     Route: 048

REACTIONS (2)
  - Chronic kidney disease [Unknown]
  - Rebound acid hypersecretion [Unknown]
